FAERS Safety Report 9450126 (Version 1)
Quarter: 2013Q3

REPORT INFORMATION
  Report Type: Spontaneous
  Country: FR (occurrence: FR)
  Receive Date: 20130809
  Receipt Date: 20130809
  Transmission Date: 20140515
  Serious: Yes (Other)
  Sender: FDA-Public Use
  Company Number: FR-PFIZER INC-2013227315

PATIENT
  Age: 72 Year
  Sex: Male

DRUGS (8)
  1. ADRIBLASTINE [Suspect]
     Dosage: 50 MG/M2, CYCLIC (EVERY 21 DAYS)
     Route: 042
     Dates: start: 20130410, end: 20130614
  2. MABTHERA [Suspect]
     Dosage: 375 MG/M2, CYCLIC (ONE EVERY 4 WEEKS)
     Route: 042
     Dates: start: 201211, end: 201303
  3. ENDOXAN [Concomitant]
     Dosage: 750 MG/M2, UNK ((1500 MG) ON DAY ONE)
  4. VINCRISTINE [Concomitant]
     Dosage: 1 MG/M2, UNK (ON DAY ONE)
  5. CORTANCYL [Concomitant]
     Dosage: 80 MG, 1X/DAY (FROM DAY ONE TO DAY FIVE)
  6. MESNA [Concomitant]
  7. EMEND [Concomitant]
  8. ZOPHREN [Concomitant]

REACTIONS (1)
  - Left ventricular failure [Not Recovered/Not Resolved]
